FAERS Safety Report 4847499-4 (Version None)
Quarter: 2005Q4

REPORT INFORMATION
  Report Type: 
  Country: None (occurrence: None)
  Receive Date: 20051205
  Receipt Date: 20051122
  Transmission Date: 20060501
  Serious: Yes (Hospitalization, Other)
  Sender: FDA-Public Use
  Company Number: HQWYE690023NOV05

PATIENT
  Age: 6 Week
  Sex: Male

DRUGS (6)
  1. CHILDREN'S ADVIL [Suspect]
     Indication: PHARYNGITIS
     Dosage: 1 DOSE FOR 5 KG EVERY 3 HOURS
     Route: 048
     Dates: start: 20050929, end: 20051005
  2. CHILDREN'S ADVIL [Suspect]
     Indication: PYREXIA
     Dosage: 1 DOSE FOR 5 KG EVERY 3 HOURS
     Route: 048
     Dates: start: 20050929, end: 20051005
  3. CHILDREN'S ADVIL [Suspect]
     Indication: RHINITIS
     Dosage: 1 DOSE FOR 5 KG EVERY 3 HOURS
     Route: 048
     Dates: start: 20050929, end: 20051005
  4. PARACETAMOL [Concomitant]
  5. MUCOMYST [Concomitant]
  6. PIVALONE                 (TIDOCORTOL PIVALATE) [Concomitant]

REACTIONS (2)
  - OVERDOSE [None]
  - PYELONEPHRITIS [None]
